FAERS Safety Report 10348757 (Version 2)
Quarter: 2014Q3

REPORT INFORMATION
  Report Type: Report from Study
  Country: NL (occurrence: NL)
  Receive Date: 20140729
  Receipt Date: 20140815
  Transmission Date: 20150326
  Serious: Yes (Hospitalization)
  Sender: FDA-Public Use
  Company Number: NL-B.I. PHARMACEUTICALS,INC./RIDGEFIELD-2014-BI-34309NL

PATIENT
  Age: 72 Year
  Sex: Male

DRUGS (7)
  1. TRADJENTA [Suspect]
     Active Substance: LINAGLIPTIN
     Indication: DIABETES MELLITUS
     Dosage: 5 MG
     Route: 065
  2. TOLBUTAMIDE. [Concomitant]
     Active Substance: TOLBUTAMIDE
     Dosage: 2000 MG
     Route: 065
  3. VALSARTAN/HYDROCHLOROTHIAZIDE [Suspect]
     Active Substance: HYDROCHLOROTHIAZIDE\VALSARTAN
     Indication: HYPERTENSION
     Dosage: DOSE PER APPLICATION AND DAILY DOSE: 320/25 MG
     Route: 065
  4. DILTIAZEM [Concomitant]
     Active Substance: DILTIAZEM
     Dosage: 300 MG
     Route: 065
  5. PROCORALAN [Concomitant]
     Active Substance: IVABRADINE
     Dosage: 10 MG
     Route: 065
  6. ISORDIL [Concomitant]
     Active Substance: ISOSORBIDE DINITRATE
     Route: 065
  7. CARBASALAATCALCIUM [Concomitant]
     Active Substance: CARBASALATE
     Dosage: 100 MG
     Route: 065

REACTIONS (1)
  - Pancreatitis [Recovered/Resolved]

NARRATIVE: CASE EVENT DATE: 20140704
